FAERS Safety Report 14746477 (Version 1)
Quarter: 2018Q2

REPORT INFORMATION
  Report Type: Spontaneous
  Country: US (occurrence: US)
  Receive Date: 20180411
  Receipt Date: 20180411
  Transmission Date: 20180711
  Serious: Yes (Hospitalization, Other)
  Sender: FDA-Public Use
  Company Number: US-PFIZER INC-2017398866

PATIENT
  Age: 20 Year
  Sex: Male
  Weight: 99 kg

DRUGS (6)
  1. TRAZODONE [Concomitant]
     Active Substance: TRAZODONE HYDROCHLORIDE
     Indication: MOOD ALTERED
     Dosage: 50 MG, 1X/DAY
     Route: 048
  2. TRAZODONE [Concomitant]
     Active Substance: TRAZODONE HYDROCHLORIDE
     Indication: INSOMNIA
  3. GENOTROPIN [Suspect]
     Active Substance: SOMATROPIN
     Dosage: 0.1 MG, 1X/DAY (NIGHTLY)
  4. LITHIUM CARBONATE. [Concomitant]
     Active Substance: LITHIUM CARBONATE
     Indication: AFFECTIVE DISORDER
     Dosage: 1500 MG, DAILY (TOTAL)
     Route: 048
  5. RISPERIDONE BIOGARAN [Concomitant]
     Indication: AFFECTIVE DISORDER
     Dosage: 1 MG, DAILY
     Route: 048
  6. GENOTROPIN [Suspect]
     Active Substance: SOMATROPIN
     Indication: PRADER-WILLI SYNDROME
     Dosage: 0.2 MG, DAILY
     Dates: start: 200807

REACTIONS (3)
  - Aggression [Unknown]
  - Intentional self-injury [Unknown]
  - Drug dose omission [Unknown]
